FAERS Safety Report 24715011 (Version 1)
Quarter: 2024Q4

REPORT INFORMATION
  Report Type: Spontaneous
  Country: GB (occurrence: GB)
  Receive Date: 20241210
  Receipt Date: 20241210
  Transmission Date: 20250114
  Serious: Yes (Other)
  Sender: Haleon PLC
  Company Number: GB-ORG100013279-031915

PATIENT
  Age: 53 Year
  Sex: Female
  Weight: 76 kg

DRUGS (5)
  1. LAMISIL [Suspect]
     Active Substance: TERBINAFINE HYDROCHLORIDE
     Indication: Adverse drug reaction
     Dosage: 4G ONE TIME TREATMENT OF BOTH FEET AS DIRECTED
     Dates: start: 20240330, end: 20241130
  2. NAPROXEN [Concomitant]
     Active Substance: NAPROXEN
     Indication: Pain
     Dates: start: 20240112
  3. MORPHINE SULFATE [Concomitant]
     Active Substance: MORPHINE SULFATE
     Indication: Adverse drug reaction
     Dates: start: 20240416
  4. TRAMADOL [Concomitant]
     Active Substance: TRAMADOL
     Indication: Adverse drug reaction
     Dates: start: 20220420
  5. LANSOPRAZOLE [Concomitant]
     Active Substance: LANSOPRAZOLE
     Indication: Adverse drug reaction
     Dates: start: 20240112

REACTIONS (9)
  - Cellulitis [Not Recovered/Not Resolved]
  - Pruritus [Not Recovered/Not Resolved]
  - Erythema [Not Recovered/Not Resolved]
  - Rash [Not Recovered/Not Resolved]
  - Joint swelling [Not Recovered/Not Resolved]
  - Blister [Not Recovered/Not Resolved]
  - Blue toe syndrome [Not Recovered/Not Resolved]
  - Rash papular [Not Recovered/Not Resolved]
  - Peripheral swelling [Not Recovered/Not Resolved]

NARRATIVE: CASE EVENT DATE: 20240330
